FAERS Safety Report 18831812 (Version 1)
Quarter: 2021Q1

REPORT INFORMATION
  Report Type: Spontaneous
  Country: US (occurrence: US)
  Receive Date: 20210203
  Receipt Date: 20210203
  Transmission Date: 20210419
  Serious: Yes (Other)
  Sender: FDA-Public Use
  Company Number: US-SA-2021SA028924

PATIENT
  Age: 70 Year
  Sex: Male

DRUGS (1)
  1. ZANTAC [Suspect]
     Active Substance: RANITIDINE HYDROCHLORIDE
     Dosage: UNK
     Dates: start: 1995, end: 2001

REACTIONS (3)
  - Prostate cancer [Recovered/Resolved]
  - Neoplasm malignant [Unknown]
  - Breast cancer stage III [Recovered/Resolved]

NARRATIVE: CASE EVENT DATE: 20130420
